FAERS Safety Report 4364252-9 (Version None)
Quarter: 2004Q2

REPORT INFORMATION
  Report Type: 
  Country: None (occurrence: None)
  Receive Date: 20040525
  Receipt Date: 20040415
  Transmission Date: 20050107
  Serious: Yes (Life-Threatening, Hospitalization, Other)
  Sender: FDA-Public Use
  Company Number: JP-MERCK-0404USA01880

PATIENT
  Age: 65 Year
  Sex: Male

DRUGS (1)
  1. PEPCID [Suspect]
     Route: 042
     Dates: end: 20040415

REACTIONS (11)
  - ASTERIXIS [None]
  - CEREBELLAR ATROPHY [None]
  - DECREASED APPETITE [None]
  - DEPRESSED LEVEL OF CONSCIOUSNESS [None]
  - DIALYSIS [None]
  - INFECTION [None]
  - PULMONARY TUBERCULOSIS [None]
  - RENAL FAILURE ACUTE [None]
  - SPUTUM CULTURE POSITIVE [None]
  - STAPHYLOCOCCAL INFECTION [None]
  - TUBERCULOSIS [None]
